FAERS Safety Report 4974956-2 (Version None)
Quarter: 2006Q2

REPORT INFORMATION
  Report Type: 
  Country: None (occurrence: None)
  Receive Date: 20060414
  Receipt Date: 20060414
  Transmission Date: 20061013
  Serious: Yes (Death, Hospitalization)
  Sender: FDA-Public Use
  Company Number: None

PATIENT
  Sex: Male
  Weight: 114 kg

DRUGS (11)
  1. CYTARABINE [Suspect]
     Indication: PRECURSOR B-LYMPHOBLASTIC LYMPHOMA
     Dosage: 70 MG
     Route: 037
     Dates: start: 20060210, end: 20060210
  2. CYTARABINE [Suspect]
     Indication: PRECURSOR B-LYMPHOBLASTIC LYMPHOMA
     Dosage: 70 MG
     Route: 037
     Dates: start: 20060209
  3. DAUNORUBICIN HCL [Suspect]
     Dosage: 63 MG
     Dates: start: 20060210, end: 20060224
  4. DAUNORUBICIN HCL [Suspect]
     Dosage: 63 MG
     Dates: start: 20060209
  5. METHOTREXATE [Suspect]
     Dosage: 15 MG
     Route: 037
     Dates: start: 20060217, end: 20060310
  6. METHOTREXATE [Suspect]
     Dosage: 15 MG
     Route: 037
     Dates: start: 20060209
  7. PEG-L-ASPARAGINASE (K-H) [Suspect]
     Dosage: 6325 UNIT
     Dates: start: 20060217, end: 20060217
  8. PEG-L-ASPARAGINASE (K-H) [Suspect]
     Dosage: 6325 UNIT
     Dates: start: 20060209
  9. PREDNISONE TAB [Suspect]
     Dosage: 75 MG
     Dates: start: 20060301, end: 20060310
  10. PREDNISONE TAB [Suspect]
     Dosage: 75 MG
     Dates: start: 20060209
  11. VINCRISTINE SULFATE [Suspect]
     Dosage: 2 MG
     Dates: start: 20060210, end: 20060224

REACTIONS (13)
  - ACUTE RESPIRATORY DISTRESS SYNDROME [None]
  - BACTERIA BLOOD IDENTIFIED [None]
  - BACTERIAL SEPSIS [None]
  - BLOOD OSMOLARITY ABNORMAL [None]
  - ESCHERICHIA INFECTION [None]
  - HAEMODIALYSIS [None]
  - HEPATIC FUNCTION ABNORMAL [None]
  - HYPERBILIRUBINAEMIA [None]
  - HYPOTENSION [None]
  - INAPPROPRIATE ANTIDIURETIC HORMONE SECRETION [None]
  - PANCREATITIS [None]
  - PYREXIA [None]
  - RESPIRATORY FAILURE [None]
